FAERS Safety Report 25282579 (Version 1)
Quarter: 2025Q2

REPORT INFORMATION
  Report Type: Spontaneous
  Country: AU (occurrence: AU)
  Receive Date: 20250508
  Receipt Date: 20250508
  Transmission Date: 20250716
  Serious: Yes (Other)
  Sender: GALPHARM INTERNATIONAL
  Company Number: AU-RBHC-20-25-AUS-RB-0004111

PATIENT
  Age: 45 Year
  Sex: Female

DRUGS (1)
  1. IBUPROFEN [Suspect]
     Active Substance: IBUPROFEN
     Indication: Product used for unknown indication
     Route: 065

REACTIONS (7)
  - Ocular myasthenia [Unknown]
  - Condition aggravated [Recovered/Resolved]
  - Pain [Recovering/Resolving]
  - Eyelid ptosis [Unknown]
  - Muscular weakness [Unknown]
  - Eye movement disorder [Recovered/Resolved]
  - Drug ineffective [Not Recovered/Not Resolved]
